FAERS Safety Report 8087722-9 (Version None)
Quarter: 2012Q1

REPORT INFORMATION
  Report Type: 
  Country: None (occurrence: None)
  Receive Date: 20120128
  Receipt Date: 20110421
  Transmission Date: 20120608
  Serious: No
  Sender: FDA-Public Use
  Company Number: US-ABBOTT-11P-163-0721134-00

PATIENT
  Sex: Female
  Weight: 55.842 kg

DRUGS (6)
  1. FOLIC ACID [Concomitant]
     Indication: RHEUMATOID ARTHRITIS
  2. HUMIRA [Suspect]
     Dates: start: 20060101, end: 20080101
  3. METHOTREXATE [Concomitant]
     Indication: RHEUMATOID ARTHRITIS
  4. PLAQUENIL [Concomitant]
     Indication: RHEUMATOID ARTHRITIS
  5. CELEBREX [Concomitant]
     Indication: RHEUMATOID ARTHRITIS
  6. HUMIRA [Suspect]
     Indication: RHEUMATOID ARTHRITIS
     Dates: start: 20110301

REACTIONS (1)
  - FATIGUE [None]
